FAERS Safety Report 16259204 (Version 5)
Quarter: 2020Q3

REPORT INFORMATION
  Report Type: Report from Study
  Country: US (occurrence: US)
  Receive Date: 20190501
  Receipt Date: 20200812
  Transmission Date: 20201102
  Serious: Yes (Hospitalization, Other)
  Sender: FDA-Public Use
  Company Number: US-ROCHE-2306530

PATIENT
  Age: 53 Year
  Sex: Female
  Weight: 93.4 kg

DRUGS (1)
  1. ATEZOLIZUMAB. [Suspect]
     Active Substance: ATEZOLIZUMAB
     Indication: CHOLANGIOCARCINOMA
     Dosage: LAST DOSE PRIOR TO SERIOUS ADVERSE EVENT: 24/SEP/2018
     Route: 042
     Dates: start: 20180924

REACTIONS (7)
  - Pyrexia [Unknown]
  - Hyperthyroidism [Not Recovered/Not Resolved]
  - Aspartate aminotransferase increased [Unknown]
  - Syncope [Unknown]
  - Alanine aminotransferase increased [Unknown]
  - Neutrophil count decreased [Unknown]
  - Peripheral sensory neuropathy [Unknown]

NARRATIVE: CASE EVENT DATE: 20181008
